FAERS Safety Report 18931064 (Version 1)
Quarter: 2021Q1

REPORT INFORMATION
  Report Type: Spontaneous
  Country: US (occurrence: US)
  Receive Date: 20210223
  Receipt Date: 20210223
  Transmission Date: 20210420
  Serious: Yes (Other)
  Sender: FDA-Public Use
  Company Number: US-ELI_LILLY_AND_COMPANY-US202102006506

PATIENT
  Sex: Female

DRUGS (4)
  1. HUMULIN 70/30 [Suspect]
     Active Substance: INSULIN HUMAN
     Dosage: UNK
     Route: 065
  2. HUMULIN 70/30 [Suspect]
     Active Substance: INSULIN HUMAN
     Indication: PRODUCT USED FOR UNKNOWN INDICATION
     Dosage: UNK, UNKNOWN
     Route: 065
  3. HUMULIN 70/30 [Suspect]
     Active Substance: INSULIN HUMAN
     Indication: PRODUCT USED FOR UNKNOWN INDICATION
     Dosage: UNK, UNKNOWN
     Route: 065
  4. HUMULIN 70/30 [Suspect]
     Active Substance: INSULIN HUMAN
     Dosage: UNK
     Route: 065

REACTIONS (10)
  - Blindness [Recovering/Resolving]
  - Macular degeneration [Recovering/Resolving]
  - Road traffic accident [Recovering/Resolving]
  - Product dose omission issue [Unknown]
  - Underdose [Unknown]
  - Concussion [Recovering/Resolving]
  - Memory impairment [Recovering/Resolving]
  - Central vision loss [Recovering/Resolving]
  - Eye haemorrhage [Recovering/Resolving]
  - Colour blindness [Recovering/Resolving]
